FAERS Safety Report 26075885 (Version 1)
Quarter: 2025Q4

REPORT INFORMATION
  Report Type: Spontaneous
  Country: KR (occurrence: KR)
  Receive Date: 20251121
  Receipt Date: 20251121
  Transmission Date: 20260117
  Serious: Yes (Other)
  Sender: ELI LILLY AND COMPANY
  Company Number: KR-ELI_LILLY_AND_COMPANY-KR202511020003

PATIENT
  Sex: Male

DRUGS (1)
  1. OLUMIANT [Suspect]
     Active Substance: BARICITINIB
     Indication: Alopecia areata
     Dosage: 4 MG, DAILY
     Route: 048
     Dates: start: 202506, end: 2025

REACTIONS (1)
  - Thyroid disorder [Not Recovered/Not Resolved]
